FAERS Safety Report 18855898 (Version 1)
Quarter: 2021Q1

REPORT INFORMATION
  Report Type: Spontaneous
  Country: RU (occurrence: RU)
  Receive Date: 20210206
  Receipt Date: 20210206
  Transmission Date: 20210420
  Serious: Yes (Other)
  Sender: FDA-Public Use
  Company Number: RU-AUROBINDO-AUR-APL-2021-005089

PATIENT
  Age: 32 Year
  Sex: Female

DRUGS (12)
  1. LAMIVUDINE. [Suspect]
     Active Substance: LAMIVUDINE
     Dosage: UNK
     Route: 065
     Dates: start: 201901
  2. ERYTHROPOIETIN [Concomitant]
     Active Substance: ERYTHROPOIETIN
     Indication: ANAEMIA
     Dosage: UNK
     Route: 065
  3. LAMIVUDINE. [Suspect]
     Active Substance: LAMIVUDINE
     Dosage: UNK
     Route: 065
     Dates: start: 201901
  4. RITONAVIR. [Suspect]
     Active Substance: RITONAVIR
     Indication: PARVOVIRUS B19 INFECTION
     Dosage: UNK
     Route: 065
     Dates: start: 201901
  5. ABACAVIR. [Suspect]
     Active Substance: ABACAVIR
     Indication: PARVOVIRUS B19 INFECTION
     Dosage: UNK
     Route: 065
     Dates: start: 201903
  6. LAMIVUDINE. [Suspect]
     Active Substance: LAMIVUDINE
     Indication: PARVOVIRUS B19 INFECTION
     Dosage: UNK
     Route: 065
     Dates: start: 201809
  7. EFAVIRENZ. [Suspect]
     Active Substance: EFAVIRENZ
     Indication: PARVOVIRUS B19 INFECTION
     Dosage: UNK
     Route: 065
     Dates: start: 201809
  8. VITAMIN B COMPLEX [Concomitant]
     Active Substance: CYANOCOBALAMIN\DEXPANTHENOL\NIACINAMIDE\PYRIDOXINE HYDROCHLORIDE\RIBOFLAVIN 5^-PHOSPHATE SODIUM\THIAMINE HYDROCHLORIDE\VITAMIN B COMPLEX
     Indication: ANAEMIA
     Dosage: UNK
     Route: 065
  9. TENOFOVIR [Suspect]
     Active Substance: TENOFOVIR
     Indication: PARVOVIRUS B19 INFECTION
     Dosage: UNK
     Route: 065
     Dates: start: 201809
  10. FOSAMPRENAVIR [Suspect]
     Active Substance: FOSAMPRENAVIR
     Indication: PARVOVIRUS B19 INFECTION
     Dosage: UNK
     Route: 065
     Dates: start: 201901
  11. ATAZANAVIR. [Suspect]
     Active Substance: ATAZANAVIR
     Indication: PARVOVIRUS B19 INFECTION
     Dosage: UNK
     Route: 065
     Dates: start: 201903
  12. IRON [Concomitant]
     Active Substance: IRON
     Indication: ANAEMIA
     Dosage: UNK
     Route: 065

REACTIONS (1)
  - Drug ineffective [Unknown]
